APPROVED DRUG PRODUCT: METHYLPHENIDATE HYDROCHLORIDE
Active Ingredient: METHYLPHENIDATE HYDROCHLORIDE
Strength: 20MG
Dosage Form/Route: TABLET;ORAL
Application: A207587 | Product #003
Applicant: MPP PHARMA LLC
Approved: Mar 3, 2017 | RLD: No | RS: No | Type: DISCN